FAERS Safety Report 7754277-5 (Version None)
Quarter: 2011Q3

REPORT INFORMATION
  Report Type: 
  Country: None (occurrence: None)
  Receive Date: 20110915
  Receipt Date: 20110909
  Transmission Date: 20111222
  Serious: Yes (Hospitalization, Other)
  Sender: FDA-Public Use
  Company Number: IT-ELI_LILLY_AND_COMPANY-IT201107003789

PATIENT
  Sex: Female

DRUGS (3)
  1. BYETTA [Suspect]
     Indication: TYPE 2 DIABETES MELLITUS
     Dosage: 20 UG, QD
     Route: 058
     Dates: start: 20100928
  2. METFORMIN HYDROCHLORIDE [Concomitant]
     Dosage: 2450 MG, UNK
     Route: 048
     Dates: start: 20100701
  3. ATORVASTATIN [Concomitant]
     Dosage: 10 MG, UNK
     Route: 048
     Dates: start: 20100701

REACTIONS (4)
  - MENINGIOMA [None]
  - CONVULSION [None]
  - BONE EROSION [None]
  - EXOSTOSIS [None]
